FAERS Safety Report 25813720 (Version 4)
Quarter: 2025Q4

REPORT INFORMATION
  Report Type: Report from Study
  Country: EU (occurrence: EU)
  Receive Date: 20250917
  Receipt Date: 20251020
  Transmission Date: 20260117
  Serious: Yes (Other)
  Sender: ABBVIE
  Company Number: EU-ABBVIE-6461334

PATIENT
  Age: 70 Year
  Sex: Female

DRUGS (6)
  1. CARBIDOPA [Suspect]
     Active Substance: CARBIDOPA
     Indication: Parkinson^s disease
     Dosage: 240 MG + 12 MILLIGRAM ?FREQUENCY TEXT: LO:2.4;HI:0.46;BA:0.36;LOW:0.26;EX:0.3?LAST ADMINISTRATION...
     Route: 058
     Dates: start: 20250721
  2. CARBIDOPA [Suspect]
     Active Substance: CARBIDOPA
     Dosage: 240 MG + 12 MILLIGRAM ?FREQUENCY TEXT: LOADING DOSE 0.9 ML; HIGH 0.64, BASE: 0.63 AND LOW: 0.55 M...
     Route: 058
     Dates: start: 2025
  3. AMANTADINE HYDROCHLORIDE [Concomitant]
     Active Substance: AMANTADINE HYDROCHLORIDE
     Indication: Product used for unknown indication
     Dosage: TIME INTERVAL: 0.33333333 DAYS: FORM STRENGTH: 100 MILLIGRAM?FIRST DATE TEXT: BEFORE DUODOPA SUBC...
  4. OPICAPONE [Concomitant]
     Active Substance: OPICAPONE
     Indication: Product used for unknown indication
     Dosage: FORM STRENGTH: 50 MILLIGRAM?FIRST DATE TEXT: BEFORE DUODOPA SUBCUTANEOUS
  5. SINEMET [Concomitant]
     Active Substance: CARBIDOPA\LEVODOPA
     Indication: Product used for unknown indication
     Dosage: TIME INTERVAL: 0.33333333 DAYS: 7.5 TABLET?STRENGTH - 25/100. START DATE TEXT: BEFORE DUODOPA SUB...
  6. REQUIP [Concomitant]
     Active Substance: ROPINIROLE HYDROCHLORIDE
     Indication: Product used for unknown indication
     Dosage: FIRST DATE TEXT: BEFORE DUODOPA SUBCUTANEOUS

REACTIONS (5)
  - Face injury [Recovered/Resolved]
  - Mass [Recovered/Resolved]
  - Fall [Recovered/Resolved]
  - Pain [Recovered/Resolved]
  - Uterine leiomyoma calcification [Not Recovered/Not Resolved]

NARRATIVE: CASE EVENT DATE: 20250901
